FAERS Safety Report 13250395 (Version 2)
Quarter: 2017Q1

REPORT INFORMATION
  Report Type: Report from Study
  Country: JP (occurrence: JP)
  Receive Date: 20170218
  Receipt Date: 20170329
  Transmission Date: 20170428
  Serious: Yes (Death)
  Sender: FDA-Public Use
  Company Number: JP-UCBSA-2017006350

PATIENT
  Age: 14 Year
  Sex: Male
  Weight: 50.1 kg

DRUGS (5)
  1. LEVETIRACETAM. [Suspect]
     Active Substance: LEVETIRACETAM
     Indication: SIMPLE PARTIAL SEIZURES
     Dosage: 1500 MG, 2X/DAY (BID)
     Route: 048
     Dates: start: 20160218, end: 20170113
  2. E KEPPRA [Suspect]
     Active Substance: LEVETIRACETAM
     Indication: SIMPLE PARTIAL SEIZURES
     Dosage: 1500 MG, 2X/DAY (BID)
     Route: 041
     Dates: start: 20170114, end: 20170117
  3. TOPINA [Concomitant]
     Active Substance: TOPIRAMATE
     Dosage: 500 MG ADAILY
     Dates: end: 20170116
  4. LEVETIRACETAM. [Suspect]
     Active Substance: LEVETIRACETAM
     Indication: PARTIAL SEIZURES WITH SECONDARY GENERALISATION
     Dosage: 1500 MG, 2X/DAY (BID)
     Route: 048
     Dates: start: 20170118
  5. TOPINA [Concomitant]
     Active Substance: TOPIRAMATE
     Indication: SIMPLE PARTIAL SEIZURES
     Dosage: 400 MG, DAILY
     Route: 048
     Dates: end: 20170113

REACTIONS (3)
  - Lymphocyte count decreased [Not Recovered/Not Resolved]
  - Death [Fatal]
  - Gamma-glutamyltransferase increased [Not Recovered/Not Resolved]

NARRATIVE: CASE EVENT DATE: 20170119
